FAERS Safety Report 14327269 (Version 1)
Quarter: 2017Q4

REPORT INFORMATION
  Report Type: Spontaneous
  Country: CN (occurrence: CN)
  Receive Date: 20171227
  Receipt Date: 20171227
  Transmission Date: 20180321
  Serious: Yes (Other)
  Sender: FDA-Public Use
  Company Number: CN-EMD SERONO-9001768

PATIENT
  Sex: Female

DRUGS (2)
  1. GONAL-F [Suspect]
     Active Substance: FOLLITROPIN
     Dosage: LAST FOUR DAYS OF OVULATION INDUCTION
     Route: 058
  2. GONAL-F [Suspect]
     Active Substance: FOLLITROPIN
     Indication: OVULATION INDUCTION
     Dosage: 75 (UNSPECIFIED UNIT) FOR FIRST FOUR DAYS OF OVULATION INDUCTION
     Route: 058

REACTIONS (3)
  - Ascites [Unknown]
  - Vomiting [Unknown]
  - Incorrect dose administered [Unknown]
